FAERS Safety Report 4666185-7 (Version None)
Quarter: 2005Q2

REPORT INFORMATION
  Report Type: 
  Country: None (occurrence: None)
  Receive Date: 20050519
  Receipt Date: 20050506
  Transmission Date: 20051028
  Serious: Yes (Other)
  Sender: FDA-Public Use
  Company Number: US-AMGEN-US131881

PATIENT
  Age: 41 Year
  Sex: Female

DRUGS (5)
  1. EPOGEN [Suspect]
     Indication: DIALYSIS
     Route: 058
     Dates: end: 20050101
  2. ARANESP [Suspect]
     Indication: DIALYSIS
     Dates: start: 20050101
  3. CELLCEPT [Concomitant]
  4. PROGRAF [Concomitant]
  5. PREDNISONE [Concomitant]

REACTIONS (4)
  - CATHETER RELATED INFECTION [None]
  - HAEMOGLOBIN DECREASED [None]
  - HAEMOLYTIC ANAEMIA [None]
  - STAPHYLOCOCCAL INFECTION [None]
